FAERS Safety Report 4617299-9 (Version None)
Quarter: 2005Q1

REPORT INFORMATION
  Report Type: 
  Country: None (occurrence: None)
  Receive Date: 20050323
  Receipt Date: 20050314
  Transmission Date: 20050727
  Serious: Yes (Hospitalization)
  Sender: FDA-Public Use
  Company Number: 05-01-0119

PATIENT
  Age: 44 Year
  Sex: Female
  Weight: 79.8331 kg

DRUGS (4)
  1. CLOZAPINE [Suspect]
     Indication: SCHIZOPHRENIA
     Dosage: 250MG QD ORAL
     Route: 048
     Dates: start: 20021001
  2. ABILIFY [Suspect]
     Indication: SCHIZOPHRENIA
     Dosage: 15MG AM
  3. LAMICTAL [Concomitant]
  4. COLACE [Concomitant]

REACTIONS (5)
  - DIZZINESS [None]
  - FALL [None]
  - HYPERCALCAEMIA [None]
  - RENAL FAILURE [None]
  - THINKING ABNORMAL [None]
